FAERS Safety Report 26021546 (Version 1)
Quarter: 2025Q4

REPORT INFORMATION
  Report Type: Spontaneous
  Country: TH (occurrence: TH)
  Receive Date: 20251110
  Receipt Date: 20251110
  Transmission Date: 20260118
  Serious: Yes (Hospitalization)
  Sender: PFIZER
  Company Number: TH-PFIZER INC-PV202500131039

PATIENT
  Age: 60 Year
  Sex: Female

DRUGS (2)
  1. IBRANCE [Suspect]
     Active Substance: PALBOCICLIB
     Indication: Breast cancer metastatic
     Dosage: 125 MG (1 TAB) EVERY 21 DAYS FOLLOWED BY 7 DAYS OF DRUG HOLIDAY
     Route: 048
     Dates: start: 20250823, end: 20251005
  2. LETROZOLE [Concomitant]
     Active Substance: LETROZOLE
     Dosage: UNK

REACTIONS (2)
  - Hormone level abnormal [Unknown]
  - White blood cell count decreased [Unknown]
